FAERS Safety Report 6506694-9 (Version None)
Quarter: 2009Q4

REPORT INFORMATION
  Report Type: 
  Country: None (occurrence: None)
  Receive Date: 20091221
  Receipt Date: 20091207
  Transmission Date: 20100525
  Serious: Yes (Other)
  Sender: FDA-Public Use
  Company Number: GR-ROCHE-673801

PATIENT
  Age: 64 Year
  Sex: Female

DRUGS (2)
  1. MYCOPHENOLATE MOFETIL [Suspect]
     Indication: SCLERODERMA
     Route: 065
  2. PREDNISOLONE [Suspect]
     Indication: SCLERODERMA
     Route: 065

REACTIONS (1)
  - SJOGREN'S SYNDROME [None]
